FAERS Safety Report 9890808 (Version 1)
Quarter: 2014Q1

REPORT INFORMATION
  Report Type: Spontaneous
  Country: US (occurrence: None)
  Receive Date: 20140207
  Receipt Date: 20140207
  Transmission Date: 20141002
  Serious: Yes (Other)
  Sender: FDA-Public Use
  Company Number: 20140035

PATIENT
  Age: 61 Year
  Sex: 0

DRUGS (2)
  1. NITROGLYCERIN [Suspect]
     Indication: PROPHYLAXIS
     Route: 013
  2. NITROGLYCERIN [Suspect]
     Indication: ARTERIAL SPASM
     Route: 013

REACTIONS (5)
  - Bradycardia [None]
  - Hypotension [None]
  - Vasodilatation [None]
  - Hyperhidrosis [None]
  - Coronary artery stenosis [None]
